FAERS Safety Report 11119768 (Version 1)
Quarter: 2015Q2

REPORT INFORMATION
  Report Type: Spontaneous
  Country: US (occurrence: US)
  Receive Date: 20150518
  Receipt Date: 20150518
  Transmission Date: 20150821
  Serious: Yes (Hospitalization)
  Sender: FDA-Public Use
  Company Number: US-B.I. PHARMACEUTICALS,INC./RIDGEFIELD-2015-BI-24897GD

PATIENT
  Age: 59 Year
  Sex: Male

DRUGS (2)
  1. SIFROL [Suspect]
     Active Substance: PRAMIPEXOLE
     Indication: PARKINSON^S DISEASE
     Dosage: 6 MG
     Route: 065
  2. CARBIDOPA W/LEVODOPA [Suspect]
     Active Substance: CARBIDOPA\LEVODOPA
     Indication: PARKINSON^S DISEASE
     Dosage: 8 CARBIDOPA/LEVODOPA 25/250 MG Q.D.
     Route: 065

REACTIONS (3)
  - Dyskinesia [Unknown]
  - Hypersexuality [Unknown]
  - Paraphilia [Unknown]
